FAERS Safety Report 8949373 (Version 1)
Quarter: 2012Q4

REPORT INFORMATION
  Report Type: 
  Country: GB (occurrence: GB)
  Receive Date: 20121206
  Receipt Date: 20121206
  Transmission Date: 20130627
  Serious: Yes (Hospitalization)
  Sender: FDA-Public Use
  Company Number: GB-PFIZER INC-2012303976

PATIENT
  Age: 58 Year
  Sex: Female
  Weight: 59 kg

DRUGS (8)
  1. GENOTROPIN [Suspect]
     Dosage: 0.9 mg, 1x/day, 7 injections/week
     Route: 058
     Dates: start: 20010906
  2. HYDROCORTISONE [Concomitant]
     Indication: ACTH DECREASED
     Dosage: UNK
     Dates: start: 199809
  3. ASPIRIN [Concomitant]
     Indication: STROKE
     Dosage: UNK
     Dates: start: 199809
  4. THYROXINE [Concomitant]
     Indication: THYROID DISORDER
     Dosage: UNK
     Dates: start: 199809
  5. ATORVASTATIN [Concomitant]
     Indication: HYPERLIPIDAEMIA
     Dosage: UNK
     Dates: start: 19991112
  6. ISOSORBIDE MONONITRATE [Concomitant]
     Indication: CHRONIC PULMONARY HEART DISEASE
     Dosage: UNK
     Dates: start: 2001
  7. EPANUTIN [Concomitant]
     Indication: EPILEPSY
     Dosage: UNK
     Dates: start: 2001
  8. VALPROATE SODIUM [Concomitant]
     Indication: EPILEPSY
     Dosage: UNK
     Dates: start: 2001

REACTIONS (1)
  - Pituitary-dependent Cushing^s syndrome [Unknown]
